FAERS Safety Report 7968002-6 (Version None)
Quarter: 2011Q4

REPORT INFORMATION
  Report Type: 
  Country: None (occurrence: None)
  Receive Date: 20111122
  Receipt Date: 20110624
  Transmission Date: 20120403
  Serious: No
  Sender: FDA-Public Use
  Company Number: PHHY2011US56608

PATIENT
  Age: 57 Year
  Sex: Female

DRUGS (6)
  1. GILENYA [Suspect]
     Dosage: 0.5 MG, QD, ORAL
     Route: 048
     Dates: start: 20110609
  2. NORTRIPTYLINE HCL [Concomitant]
  3. SERTRALINE HYDROCHLORIDE [Concomitant]
  4. TASDINE [Concomitant]
  5. NOROTIN [Concomitant]
  6. BACLOFEN [Concomitant]

REACTIONS (3)
  - IRRITABILITY [None]
  - HYPERSOMNIA [None]
  - FATIGUE [None]
